FAERS Safety Report 10205944 (Version 2)
Quarter: 2014Q2

REPORT INFORMATION
  Report Type: Spontaneous
  Country: US (occurrence: US)
  Receive Date: 20140530
  Receipt Date: 20140624
  Transmission Date: 20141212
  Serious: Yes (Hospitalization, Other)
  Sender: FDA-Public Use
  Company Number: US-BRISTOL-MYERS SQUIBB COMPANY-20790556

PATIENT
  Age: 64 Year
  Sex: Male
  Weight: 90.7 kg

DRUGS (7)
  1. ONGLYZA TABS [Suspect]
     Indication: TYPE 2 DIABETES MELLITUS
     Route: 048
     Dates: start: 20140331, end: 20140424
  2. GLIPIZIDE [Suspect]
  3. JANUVIA [Suspect]
  4. ATORVASTATIN [Concomitant]
  5. LISINOPRIL [Concomitant]
  6. METFORMIN HCL [Concomitant]
  7. HYDROCHLOROTHIAZIDE [Concomitant]

REACTIONS (3)
  - Pancreatitis [Unknown]
  - Pancreatic neuroendocrine tumour [Unknown]
  - Hypoglycaemia [Unknown]
